FAERS Safety Report 17263207 (Version 1)
Quarter: 2020Q1

REPORT INFORMATION
  Report Type: Spontaneous
  Country: AU (occurrence: US)
  Receive Date: 20200113
  Receipt Date: 20200113
  Transmission Date: 20200409
  Serious: Yes (Hospitalization)
  Sender: FDA-Public Use
  Company Number: AU-CUMBERLAND-2020-US-000001

PATIENT
  Age: 21 Year
  Sex: Female

DRUGS (1)
  1. ACETADOTE [Suspect]
     Active Substance: ACETYLCYSTEINE

REACTIONS (3)
  - Posterior reversible encephalopathy syndrome [Recovered/Resolved]
  - Seizure [Recovered/Resolved]
  - Hypertension [Not Recovered/Not Resolved]
